FAERS Safety Report 5239401-0 (Version None)
Quarter: 2007Q1

REPORT INFORMATION
  Report Type: 
  Country: None (occurrence: None)
  Receive Date: 20070216
  Receipt Date: 20070205
  Transmission Date: 20070707
  Serious: Yes (Hospitalization)
  Sender: FDA-Public Use
  Company Number: US-JNJFOC-20070201288

PATIENT
  Sex: Male
  Weight: 63.5 kg

DRUGS (27)
  1. DOXIL [Suspect]
     Indication: MULTIPLE MYELOMA
     Route: 042
  2. DEXAMETHASONE [Suspect]
     Indication: MULTIPLE MYELOMA
     Route: 048
  3. THALIDOMIDE [Suspect]
     Indication: MULTIPLE MYELOMA
     Route: 048
  4. ACETAMINOPHEN [Concomitant]
     Route: 048
  5. ACYCLOVIR [Concomitant]
     Route: 048
  6. ALLOPURINOL SODIUM [Concomitant]
     Route: 048
  7. AMOXICILLIN [Concomitant]
     Route: 048
  8. BACLOFEN [Concomitant]
     Indication: HICCUPS
     Route: 048
  9. CIPROFLOXACIN HCL [Concomitant]
     Route: 048
  10. CLONIDINE [Concomitant]
     Indication: HYPERTENSION
     Route: 062
  11. DOCUSATE [Concomitant]
     Indication: CONSTIPATION
     Route: 048
  12. ENOXAPARIN SODIUM [Concomitant]
     Route: 058
  13. EPOETIN ALFA [Concomitant]
     Route: 058
  14. FELODIPINE [Concomitant]
     Indication: HYPERTENSION
     Route: 048
  15. FERROUS SULFATE TAB [Concomitant]
     Route: 048
  16. GLIPIZIDE [Concomitant]
     Route: 048
  17. HYDRALAZINE HCL [Concomitant]
     Indication: HYPERTENSION
  18. METOPROLOL TARTRATE [Concomitant]
     Indication: HYPERTENSION
     Route: 048
  19. OMEPRAZOLE [Concomitant]
     Indication: HYPERCHLORHYDRIA
     Route: 048
  20. PROCHLORPERAZINE [Concomitant]
     Indication: VOMITING
     Route: 048
  21. PROCHLORPERAZINE [Concomitant]
     Indication: NAUSEA
     Route: 048
  22. PYRIDOXINE HCL [Concomitant]
     Route: 048
  23. SENNOSIDES [Concomitant]
     Indication: DIARRHOEA
     Route: 048
  24. SIMVASTATIN [Concomitant]
     Indication: HYPERCHOLESTEROLAEMIA
     Route: 048
  25. TEMAZEPAM [Concomitant]
     Indication: SLEEP DISORDER THERAPY
     Route: 048
  26. TERAZOSIN HCL [Concomitant]
     Route: 048
  27. WARFARIN SODIUM [Concomitant]
     Indication: ANTICOAGULANT THERAPY
     Route: 048

REACTIONS (5)
  - DEHYDRATION [None]
  - HYPERTENSION [None]
  - NAUSEA [None]
  - RENAL FAILURE ACUTE [None]
  - VOMITING [None]
